FAERS Safety Report 15888516 (Version 1)
Quarter: 2019Q1

REPORT INFORMATION
  Report Type: Spontaneous
  Country: US (occurrence: US)
  Receive Date: 20190108
  Receipt Date: 20190108
  Transmission Date: 20190417
  Serious: No
  Sender: FDA-Public Use
  Company Number: None

PATIENT
  Age: 58 Year
  Sex: Female
  Weight: 47.63 kg

DRUGS (2)
  1. RASUVO [Suspect]
     Active Substance: METHOTREXATE SODIUM
     Indication: RHEUMATOID ARTHRITIS
     Dosage: INJECT 22.5MG (0.45ML) SUBCUTANEOUSLY  ONCE WEEKLY ON THE SAME DAY EACH WEEK  AS DIRECTED
     Route: 058
     Dates: start: 201808
  2. RASUVO [Suspect]
     Active Substance: METHOTREXATE SODIUM
     Indication: PRODUCT USED FOR UNKNOWN INDICATION
     Dosage: INJECT 22.5MG (0.45ML) SUBCUTANEOUSLY  ONCE WEEKLY ON THE SAME DAY EACH WEEK  AS DIRECTED
     Route: 058
     Dates: start: 201808

REACTIONS (1)
  - Surgery [None]
